FAERS Safety Report 5217480-4 (Version None)
Quarter: 2006Q4

REPORT INFORMATION
  Report Type: 
  Country: None (occurrence: None)
  Receive Date: 20061130
  Receipt Date: 20060630
  Transmission Date: 20070319
  Serious: Yes (Hospitalization)
  Sender: FDA-Public Use
  Company Number: US200603000700

PATIENT
  Age: 44 Year
  Sex: Male
  Weight: 98.4 kg

DRUGS (2)
  1. ZYPREXA [Suspect]
     Dosage: SEE IMAGE
     Dates: start: 20040624, end: 20040722
  2. ZYPREXA [Suspect]
     Dosage: SEE IMAGE
     Dates: start: 20030801

REACTIONS (5)
  - CEREBROVASCULAR ACCIDENT [None]
  - DIABETES MELLITUS [None]
  - HYPERLIPIDAEMIA [None]
  - HYPERTENSION [None]
  - VISION BLURRED [None]
